FAERS Safety Report 12521078 (Version 1)
Quarter: 2016Q3

REPORT INFORMATION
  Report Type: Spontaneous
  Country: US (occurrence: US)
  Receive Date: 20160701
  Receipt Date: 20160701
  Transmission Date: 20161109
  Serious: No
  Sender: FDA-Public Use
  Company Number: US-009507513-1606USA004955

PATIENT
  Sex: Male
  Weight: 86.18 kg

DRUGS (1)
  1. ZOCOR [Suspect]
     Active Substance: SIMVASTATIN
     Indication: BLOOD CHOLESTEROL ABNORMAL
     Dosage: UNK
     Route: 048
     Dates: start: 2010

REACTIONS (2)
  - Adverse event [Recovered/Resolved]
  - Neuropathy peripheral [Recovered/Resolved]
